FAERS Safety Report 14935181 (Version 2)
Quarter: 2018Q3

REPORT INFORMATION
  Report Type: Report from Study
  Country: US (occurrence: US)
  Receive Date: 20180524
  Receipt Date: 20180808
  Transmission Date: 20181010
  Serious: Yes (Hospitalization, Other)
  Sender: FDA-Public Use
  Company Number: US-BAYER-2018-094157

PATIENT
  Age: 55 Year
  Sex: Female

DRUGS (4)
  1. BETASERON [Suspect]
     Active Substance: INTERFERON BETA-1B
     Indication: MULTIPLE SCLEROSIS
     Dosage: 0.25 MG, QOD
     Route: 058
     Dates: start: 20180424
  2. BETASERON [Suspect]
     Active Substance: INTERFERON BETA-1B
     Indication: MULTIPLE SCLEROSIS
     Dosage: 0.25 MG, QOD
     Route: 058
     Dates: start: 20180421
  3. BETACONNECT [Suspect]
     Active Substance: DEVICE
  4. PERCOCET [Concomitant]
     Active Substance: ACETAMINOPHEN\OXYCODONE HYDROCHLORIDE
     Dosage: UNK

REACTIONS (14)
  - Fatigue [Unknown]
  - Knee arthroplasty [None]
  - Multiple sclerosis [Unknown]
  - Device malfunction [None]
  - Confusional state [None]
  - Weight decreased [None]
  - Migraine [None]
  - Knee arthroplasty [None]
  - Decreased appetite [None]
  - Memory impairment [Unknown]
  - Laziness [None]
  - Drug dose omission [Unknown]
  - Inappropriate schedule of drug administration [None]
  - Hospitalisation [Not Recovered/Not Resolved]

NARRATIVE: CASE EVENT DATE: 20180228
